FAERS Safety Report 4932325-5 (Version None)
Quarter: 2006Q1

REPORT INFORMATION
  Report Type: 
  Country: None (occurrence: None)
  Receive Date: 20060228
  Receipt Date: 20060215
  Transmission Date: 20060701
  Serious: Yes (Disabling)
  Sender: FDA-Public Use
  Company Number: 05-0149PO FOLLOW-UP 1

PATIENT
  Age: 12 Month
  Sex: Male

DRUGS (5)
  1. PONTAL (MEFENAMIC ACID) SYRUP [Suspect]
     Indication: UPPER RESPIRATORY TRACT INFLAMMATION
     Dosage: 2 ML, AS NEEDED,
     Dates: start: 19991125
  2. CEFSPAN (CEFIXIME) [Concomitant]
  3. SENEGA [Concomitant]
  4. ANHIBA (ACETAMINOPHEN) [Concomitant]
  5. TAVEGYL (CLEMASTINE FUMARATE) [Concomitant]

REACTIONS (3)
  - DEVELOPMENTAL DELAY [None]
  - ENCEPHALOPATHY [None]
  - INFLUENZA [None]
